FAERS Safety Report 16616996 (Version 1)
Quarter: 2019Q3

REPORT INFORMATION
  Report Type: Spontaneous
  Country: FR (occurrence: FR)
  Receive Date: 20190723
  Receipt Date: 20190723
  Transmission Date: 20191004
  Serious: Yes (Other)
  Sender: FDA-Public Use
  Company Number: FR-MYLANLABS-2019M1067672

PATIENT
  Sex: Female

DRUGS (11)
  1. METHOTREXATE. [Suspect]
     Active Substance: METHOTREXATE
     Indication: CARDIAC DISORDER
     Dosage: 15 MILLIGRAM, QW (STARTED AT THE AGE OF 48 YEARS)
  2. PREDNISONE. [Suspect]
     Active Substance: PREDNISONE
     Indication: SYSTEMIC SCLERODERMA
     Dosage: 5 MILLIGRAM, QD (MAINTENANCE DOSE)
     Dates: start: 2014
  3. PREDNISONE. [Suspect]
     Active Substance: PREDNISONE
     Indication: CARDIAC DISORDER
     Dosage: 1 MILLIGRAM/KILOGRAM, QD
     Dates: start: 201412
  4. METHOTREXATE. [Suspect]
     Active Substance: METHOTREXATE
     Indication: SYSTEMIC SCLERODERMA
  5. DIGOXIN. [Suspect]
     Active Substance: DIGOXIN
     Indication: CARDIAC DISORDER
  6. PREDNISONE. [Suspect]
     Active Substance: PREDNISONE
     Dosage: 0.5 MILLIGRAM/KILOGRAM, QD (WITH A RAPID DECREASE)
     Dates: start: 201408
  7. COLCHICINE. [Suspect]
     Active Substance: COLCHICINE
     Indication: CARDIAC DISORDER
     Dosage: 1 MILLIGRAM, QD
  8. COLCHICINE. [Suspect]
     Active Substance: COLCHICINE
     Indication: SYSTEMIC SCLERODERMA
  9. RITUXIMAB. [Suspect]
     Active Substance: RITUXIMAB
     Indication: SYSTEMIC SCLERODERMA
     Dosage: UNK
     Dates: start: 201502
  10. RITUXIMAB. [Suspect]
     Active Substance: RITUXIMAB
     Indication: CARDIAC DISORDER
  11. DIGOXIN. [Suspect]
     Active Substance: DIGOXIN
     Indication: SYSTEMIC SCLERODERMA
     Dosage: UNK
     Dates: start: 201412

REACTIONS (3)
  - Drug ineffective [Recovered/Resolved]
  - Product use in unapproved indication [Unknown]
  - Staphylococcal sepsis [Unknown]

NARRATIVE: CASE EVENT DATE: 2014
